FAERS Safety Report 5195549-0 (Version None)
Quarter: 2006Q4

REPORT INFORMATION
  Report Type: 
  Country: None (occurrence: None)
  Receive Date: 20061222
  Receipt Date: 20061222
  Transmission Date: 20070319
  Serious: No
  Sender: FDA-Public Use
  Company Number: None

PATIENT
  Age: 72 Year
  Sex: Male
  Weight: 87.3 kg

DRUGS (2)
  1. SPIRONOLACTONE [Suspect]
     Indication: CARDIAC FAILURE CONGESTIVE
     Dosage: 200MG DAILY PO
     Route: 048
     Dates: start: 20060101, end: 20060701
  2. SPIRONOLACTONE [Suspect]
     Indication: HYPERTENSION
     Dosage: 200MG DAILY PO
     Route: 048
     Dates: start: 20060101, end: 20060701

REACTIONS (3)
  - BLOOD POTASSIUM INCREASED [None]
  - DYSPNOEA [None]
  - OEDEMA [None]
